FAERS Safety Report 9955474 (Version 1)
Quarter: 2014Q1

REPORT INFORMATION
  Report Type: Spontaneous
  Country: US (occurrence: US)
  Receive Date: 20140304
  Receipt Date: 20140304
  Transmission Date: 20141002
  Serious: No
  Sender: FDA-Public Use
  Company Number: US-ABBVIE-13P-163-1083916-00

PATIENT
  Age: 62 Year
  Sex: Female
  Weight: 52.21 kg

DRUGS (9)
  1. HUMIRA [Suspect]
     Indication: PSORIASIS
     Dosage: ONCE
     Dates: start: 20120911, end: 20120911
  2. HUMIRA [Suspect]
     Dosage: ONCE
     Dates: start: 20120918, end: 20120918
  3. HUMIRA [Suspect]
     Dates: start: 20120925, end: 20130115
  4. LEVOTHYROXINE [Concomitant]
     Indication: THYROIDECTOMY
  5. METOPROLOL [Concomitant]
     Indication: HYPERTENSION
  6. EFFEXOR [Concomitant]
     Indication: DEPRESSION
  7. ZOMIG [Concomitant]
     Indication: MIGRAINE
  8. RANITIDINE [Concomitant]
     Indication: GASTROOESOPHAGEAL REFLUX DISEASE
  9. ALPRAZOLAM [Concomitant]
     Indication: INSOMNIA

REACTIONS (4)
  - Musculoskeletal chest pain [Recovered/Resolved]
  - Back pain [Recovered/Resolved]
  - Spinal osteoarthritis [Not Recovered/Not Resolved]
  - Psoriasis [Not Recovered/Not Resolved]
